FAERS Safety Report 13737136 (Version 1)
Quarter: 2017Q3

REPORT INFORMATION
  Report Type: Spontaneous
  Country: US (occurrence: US)
  Receive Date: 20170710
  Receipt Date: 20170710
  Transmission Date: 20171127
  Serious: No
  Sender: FDA-Public Use
  Company Number: US-UNIQUE PHARMACEUTICAL LABORATORIES-2017RIS00019

PATIENT
  Sex: Female

DRUGS (1)
  1. DICLOFENAC SODIUM DELAYED-RELEASE TABLETS USP 75MG [Suspect]
     Active Substance: DICLOFENAC SODIUM
     Indication: INSOMNIA

REACTIONS (4)
  - Product quality issue [Unknown]
  - Drug ineffective for unapproved indication [Not Recovered/Not Resolved]
  - Hypervigilance [Unknown]
  - Somnolence [Recovered/Resolved]
